FAERS Safety Report 4559061-1 (Version None)
Quarter: 2005Q1

REPORT INFORMATION
  Report Type: 
  Country: None (occurrence: None)
  Receive Date: 20050124
  Receipt Date: 20041020
  Transmission Date: 20050727
  Serious: Yes (Life-Threatening, Hospitalization, Disabling, Other)
  Sender: FDA-Public Use
  Company Number: 200418050US

PATIENT
  Sex: Female
  Weight: 65.3 kg

DRUGS (8)
  1. ARAVA [Suspect]
     Indication: RHEUMATOID ARTHRITIS
     Route: 048
     Dates: start: 20031106, end: 20040818
  2. METHOTREXATE [Concomitant]
     Dosage: DOSE: NOT PROVIDED
  3. LOVASTATIN [Concomitant]
     Indication: HYPERLIPIDAEMIA
     Dosage: DOSE: NOT PROVIDED
     Dates: start: 20030629, end: 20040818
  4. LISINOPRIL [Concomitant]
     Dosage: DOSE: NOT PROVIDED
  5. LOPRESSOR [Concomitant]
     Dosage: DOSE: NOT PROVIDED
  6. PROTONIX [Concomitant]
     Dosage: DOSE: NOT PROVIDED
  7. TRAMADOL HCL [Concomitant]
     Dosage: DOSE: NOT PROVIDED
  8. HERBAL PREPARATION [Concomitant]
     Indication: HOT FLUSH
     Dosage: DOSE: NOT PROVIDED

REACTIONS (28)
  - ABDOMINAL DISTENSION [None]
  - ABDOMINAL PAIN [None]
  - ALANINE AMINOTRANSFERASE INCREASED [None]
  - ANTI-HBC IGG ANTIBODY POSITIVE [None]
  - ANTI-HBS ANTIBODY POSITIVE [None]
  - ASCITES [None]
  - ASPARTATE AMINOTRANSFERASE INCREASED [None]
  - BLOOD ALKALINE PHOSPHATASE INCREASED [None]
  - BLOOD BILIRUBIN INCREASED [None]
  - BLOOD PRESSURE DIASTOLIC INCREASED [None]
  - CHROMATURIA [None]
  - COAGULOPATHY [None]
  - ENCEPHALOPATHY [None]
  - FATIGUE [None]
  - HEPATIC FAILURE [None]
  - HEPATIC NECROSIS [None]
  - HEPATITIS [None]
  - HEPATOMEGALY [None]
  - HIATUS HERNIA [None]
  - INTERNATIONAL NORMALISED RATIO INCREASED [None]
  - JAUNDICE [None]
  - LIVER TRANSPLANT [None]
  - METABOLIC ACIDOSIS [None]
  - NAUSEA [None]
  - OCULAR ICTERUS [None]
  - OEDEMA [None]
  - PRURITUS [None]
  - SPLENOMEGALY [None]
